FAERS Safety Report 17767593 (Version 3)
Quarter: 2020Q2

REPORT INFORMATION
  Report Type: Spontaneous
  Country: US (occurrence: US)
  Receive Date: 20200511
  Receipt Date: 20200528
  Transmission Date: 20200714
  Serious: Yes (Other)
  Sender: FDA-Public Use
  Company Number: US-AMGEN-USASP2020073169

PATIENT
  Sex: Female

DRUGS (2)
  1. PROLIA [Suspect]
     Active Substance: DENOSUMAB
     Dosage: UNK, Q6MO
     Route: 065
     Dates: start: 2018
  2. PROLIA [Suspect]
     Active Substance: DENOSUMAB
     Indication: PRODUCT USED FOR UNKNOWN INDICATION
     Dosage: UNK, Q12MO
     Route: 065

REACTIONS (12)
  - Limb discomfort [Unknown]
  - Gastrointestinal disorder [Unknown]
  - Product administration error [Unknown]
  - Malaise [Unknown]
  - Urinary tract infection [Unknown]
  - Chronic obstructive pulmonary disease [Not Recovered/Not Resolved]
  - Spinal operation [Unknown]
  - Device defective [Unknown]
  - Back pain [Unknown]
  - Bone disorder [Unknown]
  - Pain [Unknown]
  - Inappropriate schedule of product administration [Unknown]

NARRATIVE: CASE EVENT DATE: 2018
